FAERS Safety Report 5518189-X (Version None)
Quarter: 2007Q4

REPORT INFORMATION
  Report Type: 
  Country: None (occurrence: None)
  Receive Date: 20071013
  Receipt Date: 20071013
  Transmission Date: 20080405
  Serious: Yes (Hospitalization)
  Sender: FDA-Public Use
  Company Number: None

PATIENT
  Age: 60 Year
  Sex: Male
  Weight: 60.6913 kg

DRUGS (13)
  1. OXALIPLATIN [Suspect]
     Indication: NEOPLASM MALIGNANT
     Dosage: 225 MG IV Q 21 D
     Route: 042
  2. TAXOTERE [Suspect]
     Indication: NEOPLASM MALIGNANT
     Dosage: 103 MG IV Q 21 D
     Route: 042
  3. LISINOPRIL [Concomitant]
  4. SIMVASTATIN [Concomitant]
  5. PROCHLOROPERAZINE [Concomitant]
  6. ONDANSETRON [Concomitant]
  7. DEXAMETHASONE [Concomitant]
  8. NITROGLYCERIN [Concomitant]
  9. DIGOXIN [Concomitant]
  10. ATENOLOL [Concomitant]
  11. WARFARIN SODIUM [Concomitant]
  12. NYSTATIN [Concomitant]
  13. CODEINE SUL TAB [Concomitant]

REACTIONS (5)
  - ABDOMINAL PAIN [None]
  - DIARRHOEA [None]
  - FEBRILE NEUTROPENIA [None]
  - HEART RATE INCREASED [None]
  - ORAL INTAKE REDUCED [None]
